FAERS Safety Report 23172121 (Version 3)
Quarter: 2025Q1

REPORT INFORMATION
  Report Type: Spontaneous
  Country: US (occurrence: US)
  Receive Date: 20231110
  Receipt Date: 20250210
  Transmission Date: 20250409
  Serious: Yes (Hospitalization, Other)
  Sender: SANOFI AVENTIS
  Company Number: US-SA-SAC20231108001320

PATIENT
  Sex: Female
  Weight: 97.068 kg

DRUGS (20)
  1. DUPIXENT [Suspect]
     Active Substance: DUPILUMAB
     Indication: Asthma
     Route: 058
  2. DUPIXENT [Suspect]
     Active Substance: DUPILUMAB
     Indication: Psoriatic arthropathy
     Dosage: 300 MG, QOW
     Route: 058
  3. HUMIRA [Suspect]
     Active Substance: ADALIMUMAB
  4. HYDROGEN PEROXIDE [Concomitant]
     Active Substance: HYDROGEN PEROXIDE
     Indication: Arthropod sting
  5. PREVACID [Concomitant]
     Active Substance: LANSOPRAZOLE
  6. LEFLUNOMIDE [Concomitant]
     Active Substance: LEFLUNOMIDE
  7. VITAMIN D NOS [Concomitant]
     Active Substance: CHOLECALCIFEROL\ERGOCALCIFEROL
  8. TOPIRAMATE [Concomitant]
     Active Substance: TOPIRAMATE
  9. ALBUTEROL SULFATE [Concomitant]
     Active Substance: ALBUTEROL SULFATE
  10. TRELEGY ELLIPTA [Concomitant]
     Active Substance: FLUTICASONE FUROATE\UMECLIDINIUM BROMIDE\VILANTEROL TRIFENATATE
  11. LYRICA [Concomitant]
     Active Substance: PREGABALIN
  12. DICLOFENAC SODIUM [Concomitant]
     Active Substance: DICLOFENAC SODIUM
  13. MONTELUKAST SODIUM [Concomitant]
     Active Substance: MONTELUKAST SODIUM
  14. BREO ELLIPTA [Concomitant]
     Active Substance: FLUTICASONE FUROATE\VILANTEROL TRIFENATATE
  15. CLOPIDOGREL [Concomitant]
     Active Substance: CLOPIDOGREL BISULFATE
  16. ROSUVASTATIN CALCIUM [Concomitant]
     Active Substance: ROSUVASTATIN CALCIUM
  17. FUROSEMIDE [Concomitant]
     Active Substance: FUROSEMIDE
  18. TEZSPIRE [Concomitant]
     Active Substance: TEZEPELUMAB-EKKO
  19. ORENCIA [Concomitant]
     Active Substance: ABATACEPT
  20. ETHACRYNIC ACID [Concomitant]
     Active Substance: ETHACRYNIC ACID

REACTIONS (5)
  - Cellulitis [Unknown]
  - Uveitis [Unknown]
  - Decreased immune responsiveness [Unknown]
  - Joint lock [Unknown]
  - Product use in unapproved indication [Unknown]
